FAERS Safety Report 13233571 (Version 1)
Quarter: 2017Q1

REPORT INFORMATION
  Report Type: Spontaneous
  Country: US (occurrence: US)
  Receive Date: 20170214
  Receipt Date: 20170214
  Transmission Date: 20170428
  Serious: No
  Sender: FDA-Public Use
  Company Number: None

PATIENT
  Age: 87 Year
  Sex: Female
  Weight: 48.12 kg

DRUGS (1)
  1. GAMMAGARD [Suspect]
     Active Substance: HUMAN IMMUNOGLOBULIN G
     Indication: IMMUNODEFICIENCY COMMON VARIABLE
     Route: 042
     Dates: start: 20140401, end: 20170202

REACTIONS (7)
  - Back pain [None]
  - Heart rate increased [None]
  - Oxygen saturation decreased [None]
  - Respiratory rate increased [None]
  - Anxiety [None]
  - Cyanosis [None]
  - Tremor [None]

NARRATIVE: CASE EVENT DATE: 20170202
